FAERS Safety Report 21357138 (Version 1)
Quarter: 2022Q3

REPORT INFORMATION
  Report Type: Spontaneous
  Country: US (occurrence: US)
  Receive Date: 20220921
  Receipt Date: 20220921
  Transmission Date: 20221027
  Serious: Yes (Other)
  Sender: FDA-Public Use
  Company Number: US-STRIDES ARCOLAB LIMITED-2022SP008361

PATIENT
  Age: 25 Year
  Sex: Female

DRUGS (6)
  1. PREDNISOLONE [Suspect]
     Active Substance: PREDNISOLONE
     Indication: Systemic lupus erythematosus
     Dosage: 18.35 MILLIGRAM PER DAY
     Route: 065
  2. PREDNISOLONE [Suspect]
     Active Substance: PREDNISOLONE
     Indication: Lupus nephritis
  3. BELIMUMAB [Suspect]
     Active Substance: BELIMUMAB
     Indication: Systemic lupus erythematosus
     Dosage: 760 MILLIGRAM PER MONTH
     Route: 042
  4. BELIMUMAB [Suspect]
     Active Substance: BELIMUMAB
     Indication: Lupus nephritis
  5. THALIDOMIDE [Suspect]
     Active Substance: THALIDOMIDE
     Indication: Systemic lupus erythematosus
     Dosage: UNK
     Route: 065
  6. THALIDOMIDE [Suspect]
     Active Substance: THALIDOMIDE
     Indication: Lupus nephritis

REACTIONS (4)
  - Ophthalmic herpes zoster [Recovered/Resolved]
  - Herpes zoster meningitis [Recovered/Resolved]
  - Varicella [Recovered/Resolved]
  - Rash [Recovered/Resolved]
